FAERS Safety Report 18066043 (Version 1)
Quarter: 2020Q3

REPORT INFORMATION
  Report Type: Spontaneous
  Country: EG (occurrence: EG)
  Receive Date: 20200724
  Receipt Date: 20200724
  Transmission Date: 20201103
  Serious: Yes (Other)
  Sender: FDA-Public Use
  Company Number: EG-HIKMA PHARMACEUTICALS USA INC.-EG-H14001-20-03402

PATIENT
  Sex: Female

DRUGS (2)
  1. CARBOTINOL [Suspect]
     Active Substance: CARBOPLATIN
     Indication: BREAST CANCER
     Dosage: ONCE PER CYCLE ON DAY (1)
     Route: 041
     Dates: start: 20190128, end: 20190204
  2. GEMZAR [Suspect]
     Active Substance: GEMCITABINE HYDROCHLORIDE
     Indication: BREAST CANCER
     Dosage: TWICE PER CYCLE ON DAY (1,8)
     Route: 041
     Dates: start: 20190128, end: 20190204

REACTIONS (4)
  - Neutropenia [Recovered/Resolved]
  - White blood cell count decreased [Recovered/Resolved]
  - Aspartate aminotransferase increased [Recovered/Resolved]
  - Haemoglobin decreased [Recovered/Resolved]

NARRATIVE: CASE EVENT DATE: 20190204
